FAERS Safety Report 6296365-9 (Version None)
Quarter: 2009Q3

REPORT INFORMATION
  Report Type: 
  Country: None (occurrence: None)
  Receive Date: 20090804
  Receipt Date: 20090728
  Transmission Date: 20100115
  Serious: Yes (Hospitalization)
  Sender: FDA-Public Use
  Company Number: PHHY2009IT31275

PATIENT
  Sex: Female

DRUGS (2)
  1. SANDIMMUNE [Suspect]
     Indication: PSORIASIS
     Dosage: 100 MG, BID
     Route: 048
     Dates: start: 20090224, end: 20090619
  2. EFALIZUMAB [Suspect]
     Indication: PSORIASIS
     Dosage: 1 MCG/KG, WEEKLY
     Dates: start: 20071213, end: 20090224

REACTIONS (2)
  - UTERINE DISORDER [None]
  - UTERINE OPERATION [None]
